FAERS Safety Report 4883830-1 (Version None)
Quarter: 2006Q1

REPORT INFORMATION
  Report Type: 
  Country: None (occurrence: None)
  Receive Date: 20060113
  Receipt Date: 20051230
  Transmission Date: 20060701
  Serious: Yes (Hospitalization)
  Sender: FDA-Public Use
  Company Number: US200601000186

PATIENT
  Age: 67 Year
  Sex: Female

DRUGS (7)
  1. ZYPREXA [Suspect]
     Indication: BIPOLAR DISORDER
     Dosage: SEE IMAGE
     Dates: start: 20050501
  2. SEROQUEL [Concomitant]
  3. DEPAKOTE [Concomitant]
  4. KLONOPIN [Concomitant]
  5. MOTRIN [Concomitant]
  6. ASA (ASPIRIN ACETYSALICYLIC ACID) [Concomitant]
  7. SYNTHROID [Concomitant]

REACTIONS (3)
  - CHEST PAIN [None]
  - FALL [None]
  - PNEUMONIA [None]
